FAERS Safety Report 7582577-0 (Version None)
Quarter: 2011Q2

REPORT INFORMATION
  Report Type: 
  Country: None (occurrence: None)
  Receive Date: 20110630
  Receipt Date: 20110622
  Transmission Date: 20111010
  Serious: Yes (Other)
  Sender: FDA-Public Use
  Company Number: CA-ASTELLAS-2011US003364

PATIENT
  Age: 12 Year
  Sex: Male

DRUGS (10)
  1. EPOGEN [Concomitant]
     Indication: PRODUCT USED FOR UNKNOWN INDICATION
     Dosage: UNK
     Route: 065
  2. MYCOPHENOLATE MEFETIL [Concomitant]
     Indication: RENAL TRANSPLANT
     Dosage: UNK
     Route: 048
  3. FERROUS SULFATE TAB [Concomitant]
     Indication: PRODUCT USED FOR UNKNOWN INDICATION
     Dosage: UNK
     Route: 065
  4. SODIUM BICARBONATE [Concomitant]
     Indication: PRODUCT USED FOR UNKNOWN INDICATION
     Dosage: UNK
     Route: 065
  5. PROGRAF [Suspect]
     Dosage: 0.15 MG/KG, UID/QD
     Route: 048
  6. PREDNISONE [Concomitant]
     Dosage: 1 MG/KG, UID/QD
     Route: 048
  7. PROGRAF [Suspect]
     Indication: RENAL TRANSPLANT
     Dosage: 0.05 MG/KG, UID/QD
     Route: 048
  8. PREDNISONE [Concomitant]
     Indication: RENAL TRANSPLANT
     Dosage: 5 MG, QOD
     Route: 048
  9. PREDNISONE [Concomitant]
     Dosage: 2 MG/KG, UID/QD
     Route: 048
  10. CALCITRIOL [Concomitant]
     Indication: PRODUCT USED FOR UNKNOWN INDICATION
     Dosage: UNK
     Route: 065

REACTIONS (4)
  - CHRONIC ALLOGRAFT NEPHROPATHY [None]
  - PEMPHIGOID [None]
  - TREATMENT NONCOMPLIANCE [None]
  - COMPLICATIONS OF TRANSPLANTED KIDNEY [None]
